FAERS Safety Report 7917115-3 (Version None)
Quarter: 2011Q4

REPORT INFORMATION
  Report Type: 
  Country: None (occurrence: None)
  Receive Date: 20111116
  Receipt Date: 20111109
  Transmission Date: 20120403
  Serious: Yes (Other)
  Sender: FDA-Public Use
  Company Number: US-ABBOTT-11P-163-0849335-00

PATIENT
  Sex: Female
  Weight: 103.06 kg

DRUGS (29)
  1. CYMBALTA [Concomitant]
     Indication: DEPRESSION
     Route: 048
     Dates: start: 20100902
  2. LOSARTAN POTASSIUM [Concomitant]
     Indication: HYPERTENSION
     Route: 048
     Dates: start: 20101104
  3. SOMA [Concomitant]
     Indication: PAIN
  4. PROMETHAZINE HCL [Concomitant]
     Indication: NAUSEA
     Dosage: 1 EVERY 8 HOURS AS NEEDED
     Route: 054
     Dates: start: 20110305
  5. VENTOLIN HFA [Concomitant]
     Indication: PRODUCT USED FOR UNKNOWN INDICATION
     Dosage: 108(90) BASE MCG/ACT 2 PUFF 4XDAY PRN
     Route: 055
     Dates: start: 20101019
  6. MIRTAZAPINE [Concomitant]
     Indication: PRODUCT USED FOR UNKNOWN INDICATION
     Dosage: AT BEDTIME
     Route: 048
     Dates: start: 20100812
  7. MELOXICAM [Concomitant]
     Indication: FIBROMYALGIA
     Dosage: DAILY IF NEEDED
     Route: 048
     Dates: start: 20110425
  8. MULTIPLE CREAMS [Concomitant]
     Indication: PSORIASIS
  9. LORAZEPAM [Concomitant]
     Indication: ANXIETY
     Route: 048
     Dates: start: 20100812
  10. CRANBERRY [Concomitant]
     Indication: PRODUCT USED FOR UNKNOWN INDICATION
     Route: 048
     Dates: start: 20110208
  11. ONE-A-DAY ENERGY [Concomitant]
     Indication: PRODUCT USED FOR UNKNOWN INDICATION
     Route: 048
     Dates: start: 20110208
  12. DOVONEX [Concomitant]
     Indication: PRODUCT USED FOR UNKNOWN INDICATION
     Dates: start: 20110921
  13. MOMETASONE FUROATE [Concomitant]
     Indication: PRODUCT USED FOR UNKNOWN INDICATION
     Dosage: SPARINGLY TO AFFECTED AREAS 1-2 DAILY
     Route: 061
     Dates: start: 20101129
  14. SINGULAIR [Concomitant]
     Indication: PRODUCT USED FOR UNKNOWN INDICATION
     Route: 048
     Dates: start: 20100812
  15. CARISOPRODOL [Concomitant]
     Indication: PRODUCT USED FOR UNKNOWN INDICATION
     Route: 048
     Dates: start: 20100812
  16. CYMBALTA [Concomitant]
     Indication: PRODUCT USED FOR UNKNOWN INDICATION
     Route: 048
     Dates: start: 20100902
  17. CYMBALTA [Concomitant]
     Indication: FIBROMYALGIA
     Route: 048
     Dates: start: 20110208
  18. LASIX [Concomitant]
     Indication: HYPERTENSION
     Route: 048
     Dates: start: 20110801
  19. HUMIRA [Suspect]
     Indication: PSORIASIS
     Route: 058
     Dates: start: 20110708
  20. AMLODIPINE BESYLATE [Concomitant]
     Indication: HYPERTENSION
     Route: 048
     Dates: start: 20110110
  21. ACETAMINOPHEN AND HYDROCODONE BITARTRATE [Concomitant]
     Indication: PAIN
     Dosage: 5/500MG-1 1/2 TABLET 2-3 TIMES DAY, PRN
     Route: 048
     Dates: start: 20100812
  22. AMBIEN [Concomitant]
     Indication: INSOMNIA
     Dosage: AT BEDTIME IF NEEDED
     Route: 048
     Dates: start: 20110204
  23. INHALER SOLUTION [Concomitant]
     Indication: INHALATION THERAPY
     Route: 055
     Dates: start: 20101019
  24. ALBUTEROL SULFATE [Concomitant]
     Indication: PRODUCT USED FOR UNKNOWN INDICATION
     Dosage: 2.5MG/3ML, 0.083% NEB 1 Q4HR, PRN
     Route: 055
     Dates: start: 20110801
  25. CYMBALTA [Concomitant]
     Dosage: DELAYED RELEASE PARTICLES
     Route: 048
     Dates: start: 20110208
  26. NORMAL INHALER [Concomitant]
     Indication: ASTHMA
  27. PROMETHAZINE HCL [Concomitant]
     Indication: VOMITING
  28. PREDNISONE [Concomitant]
     Indication: PRODUCT USED FOR UNKNOWN INDICATION
     Dosage: 3 DAILY W/FOOD X7 DAYS, THEN - 1 DAILY
     Route: 048
     Dates: start: 20111014
  29. HYDROCHLOROTHIAZIDE [Concomitant]
     Indication: PRODUCT USED FOR UNKNOWN INDICATION
     Dates: end: 20110801

REACTIONS (7)
  - DRUG INEFFECTIVE [None]
  - BLOOD CHOLESTEROL INCREASED [None]
  - PSORIASIS [None]
  - AORTIC STENOSIS [None]
  - DEPRESSION [None]
  - DIABETES MELLITUS [None]
  - CARDIAC MURMUR [None]
